FAERS Safety Report 17346925 (Version 1)
Quarter: 2020Q1

REPORT INFORMATION
  Report Type: Report from Study
  Country: CA (occurrence: CA)
  Receive Date: 20200129
  Receipt Date: 20200129
  Transmission Date: 20200409
  Serious: No
  Sender: FDA-Public Use
  Company Number: CA-EXELIXIS-CABO-19022057

PATIENT
  Age: 61 Year
  Sex: Female

DRUGS (1)
  1. CABOMETYX [Suspect]
     Active Substance: CABOZANTINIB S-MALATE
     Indication: RENAL CELL CARCINOMA
     Dosage: 20 MG, QD
     Route: 048
     Dates: start: 20190121, end: 20190617

REACTIONS (2)
  - Diarrhoea [Unknown]
  - Localised infection [Unknown]

NARRATIVE: CASE EVENT DATE: 20190617
